FAERS Safety Report 11291178 (Version 2)
Quarter: 2015Q3

REPORT INFORMATION
  Report Type: Spontaneous
  Country: US (occurrence: None)
  Receive Date: 20150720
  Receipt Date: 20150810
  Transmission Date: 20151125
  Serious: Yes (Other)
  Sender: FDA-Public Use
  Company Number: ADR-2015-01336

PATIENT
  Age: 54 Year
  Sex: Female

DRUGS (4)
  1. MORPHINE INTRATHECAL [Suspect]
     Active Substance: MORPHINE
  2. FENTANYL INTRATHECAL [Suspect]
     Active Substance: FENTANYL
  3. CLONIDINE. [Suspect]
     Active Substance: CLONIDINE
  4. BACLOFEN INTRATHECAL [Suspect]
     Active Substance: BACLOFEN
     Indication: PAIN

REACTIONS (7)
  - Open fracture [None]
  - Fall [None]
  - Pain [None]
  - Liver disorder [None]
  - Drug effect decreased [None]
  - Renal disorder [None]
  - Spinal fracture [None]
